FAERS Safety Report 9440598 (Version 5)
Quarter: 2016Q3

REPORT INFORMATION
  Report Type: Spontaneous
  Country: GB (occurrence: GB)
  Receive Date: 20130805
  Receipt Date: 20160705
  Transmission Date: 20161109
  Serious: Yes (Death, Other)
  Sender: FDA-Public Use
  Company Number: GB-PFIZER INC-2013222341

PATIENT
  Age: 67 Year
  Sex: Male

DRUGS (7)
  1. MEROPENEM. [Suspect]
     Active Substance: MEROPENEM
     Dosage: UNK
     Route: 042
  2. MEROPENEM. [Suspect]
     Active Substance: MEROPENEM
     Dosage: UNK
     Route: 042
     Dates: start: 20130419
  3. SODIUM FUSIDATE [Suspect]
     Active Substance: FUSIDATE SODIUM
     Dosage: UNK
  4. LINEZOLID. [Suspect]
     Active Substance: LINEZOLID
     Dosage: UNK
     Dates: start: 20130222, end: 20130402
  5. CUBICIN [Suspect]
     Active Substance: DAPTOMYCIN
     Indication: STAPHYLOCOCCAL INFECTION
     Dosage: 6 MG/KG, ALTERNATE DAY
     Route: 042
     Dates: start: 20130222
  6. CUBICIN [Suspect]
     Active Substance: DAPTOMYCIN
     Dosage: 120 DF
     Route: 042
     Dates: start: 20130419, end: 20130429
  7. SODIUM FUSIDATE [Suspect]
     Active Substance: FUSIDATE SODIUM
     Dosage: UNK
     Dates: start: 20130419

REACTIONS (8)
  - Thrombocytopenia [Unknown]
  - Anaemia [Recovered/Resolved]
  - Death [Fatal]
  - Somnolence [Unknown]
  - Cardiac valve vegetation [Unknown]
  - Pulmonary mass [Unknown]
  - Splenic embolism [Unknown]
  - Neurotoxicity [Unknown]

NARRATIVE: CASE EVENT DATE: 20130411
